FAERS Safety Report 13024510 (Version 2)
Quarter: 2017Q1

REPORT INFORMATION
  Report Type: Report from Study
  Country: US (occurrence: US)
  Receive Date: 20161213
  Receipt Date: 20170110
  Transmission Date: 20170428
  Serious: Yes (Death, Hospitalization)
  Sender: FDA-Public Use
  Company Number: US-ACTELION-A-US2016-146614

PATIENT
  Age: 61 Year
  Sex: Female

DRUGS (25)
  1. DELTASONE [Concomitant]
     Active Substance: PREDNISONE
     Dosage: 5 MG, QD
     Route: 048
  2. OPSUMIT [Suspect]
     Active Substance: MACITENTAN
     Indication: PULMONARY HYPERTENSION
     Dosage: 10 M, QD
     Route: 048
     Dates: start: 20160817
  3. NEURONTIN [Concomitant]
     Active Substance: GABAPENTIN
     Dosage: 300 MG, BID
     Route: 048
  4. NITROSTAT [Concomitant]
     Active Substance: NITROGLYCERIN
     Dosage: 0.4 MG, PRN AS DIRECTED FOR CHEST PAIN
     Route: 060
  5. COREG [Concomitant]
     Active Substance: CARVEDILOL
     Dosage: 50 MG, BID AT 9 A AND 9PM
     Route: 048
  6. VITAMIN C [Concomitant]
     Active Substance: ASCORBIC ACID
     Dosage: 250 MG, QD
     Route: 048
  7. AMBIEN [Concomitant]
     Active Substance: ZOLPIDEM TARTRATE
     Indication: INSOMNIA
     Dosage: 5 MG, PRN AT HS
  8. ELIQUIS [Concomitant]
     Active Substance: APIXABAN
     Dosage: 2.5 MG, BID
     Route: 048
  9. PLAQUENIL [Concomitant]
     Active Substance: HYDROXYCHLOROQUINE SULFATE
     Dosage: 200 MG, BID
     Route: 048
  10. ADCIRCA [Concomitant]
     Active Substance: TADALAFIL
     Indication: PULMONARY HYPERTENSION
     Dosage: 40 MG, QD
     Route: 048
  11. MILRINONE [Concomitant]
     Active Substance: MILRINONE
     Indication: PULMONARY HYPERTENSION
     Dosage: 1 DOSE IV AS DIRECTED
     Route: 042
  12. LIORESAL [Concomitant]
     Active Substance: BACLOFEN
     Indication: MUSCLE SPASMS
     Dosage: 10 MG, Q8 PRN
     Route: 048
  13. ZAROXOLYN [Concomitant]
     Active Substance: METOLAZONE
     Dosage: 5 MG, QD
     Route: 048
  14. BUMEX [Concomitant]
     Active Substance: BUMETANIDE
     Dosage: 2 MG, BID
     Route: 048
  15. LIPITOR [Concomitant]
     Active Substance: ATORVASTATIN CALCIUM
     Dosage: 20 MG, QD AT BEDTIME
     Route: 048
  16. MAG-OX [Concomitant]
     Active Substance: MAGNESIUM OXIDE
     Dosage: 250 MG, QD
  17. OSCAL D [Concomitant]
     Active Substance: CALCIUM CARBONATE\CHOLECALCIFEROL
     Dosage: 1 DF, BID
     Route: 048
  18. MIRALAX [Concomitant]
     Active Substance: POLYETHYLENE GLYCOL 3350
     Indication: CONSTIPATION
     Dosage: 17 G, QD, PRN
     Route: 048
  19. APRESOLINE HYDROCHLORIDE [Concomitant]
     Active Substance: HYDRALAZINE HYDROCHLORIDE
     Dosage: 50 MG, TID
     Route: 048
  20. FOLIC ACID. [Concomitant]
     Active Substance: FOLIC ACID
     Dosage: 1 MG, BID
     Route: 048
  21. REMERON [Concomitant]
     Active Substance: MIRTAZAPINE
     Dosage: 15 MG, QD AT BEDTIME
     Route: 048
  22. PROTONIX [Concomitant]
     Active Substance: PANTOPRAZOLE SODIUM
     Dosage: 40 MG, BID
     Route: 048
  23. K-DUR [Concomitant]
     Active Substance: POTASSIUM CHLORIDE
     Dosage: 40 MEQ, BID
     Route: 048
  24. LEXAPRO [Concomitant]
     Active Substance: ESCITALOPRAM OXALATE
     Dosage: 10 MG, QD
     Route: 048
  25. PREDNISONE. [Concomitant]
     Active Substance: PREDNISONE
     Indication: RHEUMATOID ARTHRITIS

REACTIONS (11)
  - Decreased appetite [Unknown]
  - Dyspnoea exertional [Unknown]
  - Diarrhoea [Unknown]
  - Oedema [Unknown]
  - Death [Fatal]
  - Nausea [Unknown]
  - Chronic left ventricular failure [Unknown]
  - Fatigue [Unknown]
  - Orthopnoea [Unknown]
  - Jugular vein distension [Unknown]
  - Transplant evaluation [Unknown]
